FAERS Safety Report 15853957 (Version 1)
Quarter: 2019Q1

REPORT INFORMATION
  Report Type: Spontaneous
  Country: US (occurrence: US)
  Receive Date: 20190121
  Receipt Date: 20190121
  Transmission Date: 20190417
  Serious: Yes (Other)
  Sender: FDA-Public Use
  Company Number: None

PATIENT
  Age: 58 Year
  Sex: Female
  Weight: 110.25 kg

DRUGS (3)
  1. BENAZIPRIL [Concomitant]
  2. TRINTELLIX [Suspect]
     Active Substance: VORTIOXETINE HYDROBROMIDE
     Indication: DEPRESSION
     Route: 048
     Dates: start: 20171025
  3. CLONZAEPAM [Concomitant]

REACTIONS (2)
  - Alopecia [None]
  - Hypersomnia [None]

NARRATIVE: CASE EVENT DATE: 20180710
